FAERS Safety Report 8198361-3 (Version None)
Quarter: 2012Q1

REPORT INFORMATION
  Report Type: 
  Country: None (occurrence: None)
  Receive Date: 20120309
  Receipt Date: 20120305
  Transmission Date: 20120608
  Serious: Yes (Other)
  Sender: FDA-Public Use
  Company Number: PHHY2011CA89593

PATIENT
  Sex: Female

DRUGS (1)
  1. GILENYA [Suspect]
     Indication: RELAPSING-REMITTING MULTIPLE SCLEROSIS
     Dosage: 0.5 MG, DAILY
     Route: 048
     Dates: start: 20110916

REACTIONS (11)
  - OPTIC NEURITIS [None]
  - ORAL PAIN [None]
  - CHILLS [None]
  - PYREXIA [None]
  - PHOTOPHOBIA [None]
  - COUGH [None]
  - HEADACHE [None]
  - VISION BLURRED [None]
  - OROPHARYNGEAL PAIN [None]
  - EYE PAIN [None]
  - VOMITING [None]
